FAERS Safety Report 6965284-4 (Version None)
Quarter: 2010Q3

REPORT INFORMATION
  Report Type: 
  Country: None (occurrence: None)
  Receive Date: 20100903
  Receipt Date: 20100831
  Transmission Date: 20110219
  Serious: Yes (Death, Hospitalization, Other)
  Sender: FDA-Public Use
  Company Number: GB-B.I. PHARMACEUTICALS,INC./RIDGEFIELD-2010-UK-00827UK

PATIENT
  Sex: Male
  Weight: 53 kg

DRUGS (7)
  1. MIRAPEX [Suspect]
     Indication: PARKINSON'S DISEASE
     Dates: start: 20090101, end: 20090801
  2. CITALOPRAM HYDROBROMIDE [Suspect]
     Indication: DEPRESSION
     Dosage: 20 MG
  3. MADOPAR [Suspect]
     Indication: PARKINSON'S DISEASE
     Dosage: 375 MG
  4. MADOPAR [Suspect]
     Dosage: 62.5 MG
  5. MADOPAR CR [Suspect]
     Indication: PARKINSON'S DISEASE
     Dosage: 125 MG
  6. CLOZAPINE [Concomitant]
     Indication: PSYCHOTIC DISORDER
     Dosage: 50 MG
  7. DIAZEPAM [Concomitant]
     Indication: ANXIETY
     Dosage: PRN

REACTIONS (9)
  - ACUTE PSYCHOSIS [None]
  - AGGRESSION [None]
  - COMPLETED SUICIDE [None]
  - DELUSION [None]
  - DEPRESSION [None]
  - HALLUCINATION, AUDITORY [None]
  - OVERDOSE [None]
  - PARANOIA [None]
  - SUICIDE ATTEMPT [None]
